FAERS Safety Report 4541249-7 (Version None)
Quarter: 2004Q4

REPORT INFORMATION
  Report Type: 
  Country: None (occurrence: None)
  Receive Date: 20041228
  Receipt Date: 20041220
  Transmission Date: 20050328
  Serious: Yes (Other)
  Sender: FDA-Public Use
  Company Number: 200415872BCC

PATIENT
  Age: 23 Year
  Sex: Female
  Weight: 63.5036 kg

DRUGS (1)
  1. MIDOL MENSTRUAL COMPLETE CAPLETS [Suspect]
     Indication: DYSMENORRHOEA
     Dosage: 1000/120/30 MG, ONCE, ORAL
     Route: 048
     Dates: start: 20041001

REACTIONS (5)
  - CHEST PAIN [None]
  - DRUG HYPERSENSITIVITY [None]
  - DYSPNOEA [None]
  - HYPERHIDROSIS [None]
  - PALPITATIONS [None]
